FAERS Safety Report 9292972 (Version 1)
Quarter: 2013Q2

REPORT INFORMATION
  Report Type: Spontaneous
  Country: FR (occurrence: FR)
  Receive Date: 20130516
  Receipt Date: 20130516
  Transmission Date: 20140414
  Serious: Yes (Death)
  Sender: FDA-Public Use
  Company Number: FR-PFIZER INC-2013150894

PATIENT
  Age: 39 Year
  Sex: Male

DRUGS (1)
  1. ATROPINE SULFATE [Suspect]
     Dosage: UNK

REACTIONS (6)
  - Toxicity to various agents [Fatal]
  - Respiratory arrest [None]
  - Cardiac arrest [None]
  - Exposure via inhalation [None]
  - Accidental exposure to product [None]
  - Acute pulmonary oedema [None]
